FAERS Safety Report 7264422-6 (Version None)
Quarter: 2011Q1

REPORT INFORMATION
  Report Type: 
  Country: None (occurrence: None)
  Receive Date: 20110131
  Receipt Date: 20100623
  Transmission Date: 20110831
  Serious: Yes (Other)
  Sender: FDA-Public Use
  Company Number: US-BAYER-200942581NA

PATIENT
  Sex: Female
  Weight: 63.636 kg

DRUGS (9)
  1. OCELLA [Suspect]
     Indication: CONTRACEPTION
     Route: 048
     Dates: start: 20060101, end: 20080101
  2. ACETAMINOPHEN [Concomitant]
     Dates: start: 20000101
  3. GAS-X [Concomitant]
     Indication: CONSTIPATION
  4. PEPCID [Concomitant]
  5. YASMIN [Suspect]
     Indication: CONTRACEPTION
     Route: 048
     Dates: start: 20040101, end: 20060101
  6. IBUPROFEN [Concomitant]
     Dates: start: 20000101
  7. LEXAPRO [Concomitant]
  8. CALCIUM [Concomitant]
  9. UNCODEABLE ^UNCLASSIFIABLE^ [Concomitant]
     Dates: start: 20000101

REACTIONS (13)
  - GASTROOESOPHAGEAL REFLUX DISEASE [None]
  - MUSCULOSKELETAL PAIN [None]
  - CHOLECYSTITIS CHRONIC [None]
  - CHOLELITHIASIS [None]
  - ABDOMINAL PAIN UPPER [None]
  - ABDOMINAL TENDERNESS [None]
  - HYPERCHLORHYDRIA [None]
  - BREAST DISCHARGE [None]
  - MUSCLE SPASMS [None]
  - NAUSEA [None]
  - VOMITING [None]
  - BILIARY COLIC [None]
  - GASTRIC ULCER [None]
